FAERS Safety Report 7684786-9 (Version None)
Quarter: 2011Q3

REPORT INFORMATION
  Report Type: 
  Country: None (occurrence: None)
  Receive Date: 20110816
  Receipt Date: 20110808
  Transmission Date: 20111222
  Serious: Yes (Other)
  Sender: FDA-Public Use
  Company Number: FR-CEPHALON-US020966

PATIENT
  Age: 36 Year
  Sex: Female

DRUGS (15)
  1. MODAFINIL [Suspect]
     Indication: NARCOLEPSY
     Route: 048
  2. XYREM [Suspect]
     Route: 048
     Dates: start: 20061114, end: 20061119
  3. XYREM [Suspect]
     Route: 048
     Dates: start: 20070125, end: 20070524
  4. XYREM [Suspect]
     Dosage: PROGRESSIVELY DECREASING FROM 9 G
     Route: 048
     Dates: start: 20070524, end: 20070618
  5. XYREM [Suspect]
     Indication: SLEEP DISORDER
     Route: 048
     Dates: start: 20061027, end: 20061109
  6. XYREM [Suspect]
     Route: 048
     Dates: start: 20061120, end: 20061122
  7. XYREM [Suspect]
     Route: 048
     Dates: start: 20061110, end: 20061111
  8. XYREM [Suspect]
     Route: 048
     Dates: start: 20061112, end: 20061113
  9. XYREM [Suspect]
     Route: 048
     Dates: start: 20070618, end: 20070701
  10. XYREM [Suspect]
     Route: 048
     Dates: start: 20061123, end: 20061231
  11. XYREM [Suspect]
     Route: 048
     Dates: end: 20080101
  12. XYREM [Suspect]
     Route: 048
     Dates: start: 20070101, end: 20070111
  13. XYREM [Suspect]
     Route: 048
     Dates: start: 20070112, end: 20070124
  14. XYREM [Suspect]
     Route: 048
     Dates: start: 20070701
  15. XYREM [Suspect]
     Route: 048
     Dates: start: 20080101

REACTIONS (24)
  - DEPRESSION [None]
  - AGGRESSION [None]
  - FATIGUE [None]
  - VERTIGO [None]
  - ASTHENIA [None]
  - VISUAL IMPAIRMENT [None]
  - SUICIDAL IDEATION [None]
  - PARAESTHESIA [None]
  - INSOMNIA [None]
  - HEADACHE [None]
  - MONOPLEGIA [None]
  - BONE PAIN [None]
  - SOMNOLENCE [None]
  - ENURESIS [None]
  - PALPITATIONS [None]
  - MYALGIA [None]
  - CATAPLEXY [None]
  - TREMOR [None]
  - ARTHRALGIA [None]
  - NIGHT SWEATS [None]
  - SUFFOCATION FEELING [None]
  - NIGHTMARE [None]
  - NERVOUSNESS [None]
  - NAUSEA [None]
